FAERS Safety Report 24576030 (Version 8)
Quarter: 2025Q3

REPORT INFORMATION
  Report Type: Other
  Country: US (occurrence: US)
  Receive Date: 20241104
  Receipt Date: 20250922
  Transmission Date: 20251021
  Serious: No
  Sender: TRAVERE THERAPEUTICS
  Company Number: US-TRAVERE-2024TVT01060

PATIENT
  Age: 52 Year
  Sex: Female
  Weight: 52.2 kg

DRUGS (13)
  1. FILSPARI [Suspect]
     Active Substance: SPARSENTAN
     Indication: IgA nephropathy
     Dosage: LOT NUMBER: 1979025, EXPIRY DATE: 30-AUG-2026
     Route: 048
     Dates: start: 20241014
  2. OTEZLA [Concomitant]
     Active Substance: APREMILAST
  3. KETOCONAZOLE [Concomitant]
     Active Substance: KETOCONAZOLE
  4. CALCITRIOL [Concomitant]
     Active Substance: CALCITRIOL
  5. SIMVASTATIN [Concomitant]
     Active Substance: SIMVASTATIN
  6. VTAMA [Concomitant]
     Active Substance: TAPINAROF
  7. FARXIGA [Concomitant]
     Active Substance: DAPAGLIFLOZIN PROPANEDIOL
  8. VYTORIN [Concomitant]
     Active Substance: EZETIMIBE\SIMVASTATIN
  9. NIZORAL [Concomitant]
     Active Substance: KETOCONAZOLE
  10. VITAMINS [Concomitant]
     Active Substance: VITAMINS
  11. PANTOPRAZOLE [Concomitant]
     Active Substance: PANTOPRAZOLE
  12. VITAMIN D [Concomitant]
     Active Substance: VITAMIN D NOS
  13. LOKELMA [Concomitant]
     Active Substance: SODIUM ZIRCONIUM CYCLOSILICATE

REACTIONS (16)
  - Hypoaesthesia [Unknown]
  - Alanine aminotransferase increased [Recovered/Resolved]
  - Aspartate aminotransferase increased [Recovered/Resolved]
  - Renal impairment [Unknown]
  - Erythema [Unknown]
  - Blood triglycerides increased [Unknown]
  - Chills [Recovered/Resolved]
  - Palpitations [Recovered/Resolved]
  - Pyrexia [Recovered/Resolved]
  - Panic attack [Recovered/Resolved]
  - Bradycardia [Recovered/Resolved]
  - Decreased appetite [None]
  - Weight decreased [None]
  - Nausea [None]
  - Gastrointestinal disorder [Unknown]
  - Pruritus [Unknown]

NARRATIVE: CASE EVENT DATE: 20241101
